FAERS Safety Report 5627470-5 (Version None)
Quarter: 2008Q1

REPORT INFORMATION
  Report Type: 
  Country: None (occurrence: None)
  Receive Date: 20080214
  Receipt Date: 20080214
  Transmission Date: 20080703
  Serious: Yes (Other)
  Sender: FDA-Public Use
  Company Number: None

PATIENT
  Age: 80 Year
  Sex: Male
  Weight: 72.5755 kg

DRUGS (2)
  1. VYTORIN [Suspect]
     Indication: BLOOD CHOLESTEROL INCREASED
     Dosage: 10-80 ONE PER DAY PO
     Route: 048
     Dates: start: 20050510, end: 20070915
  2. CRESTOR [Suspect]
     Dosage: 20 MG ONE PER DAY PO
     Route: 048
     Dates: start: 20070917, end: 20080108

REACTIONS (5)
  - BACK PAIN [None]
  - HEADACHE [None]
  - MUSCULOSKELETAL PAIN [None]
  - MYALGIA [None]
  - NECK PAIN [None]
